FAERS Safety Report 6925541-4 (Version None)
Quarter: 2010Q3

REPORT INFORMATION
  Report Type: 
  Country: None (occurrence: None)
  Receive Date: 20100816
  Receipt Date: 20100809
  Transmission Date: 20110219
  Serious: Yes (Hospitalization)
  Sender: FDA-Public Use
  Company Number: GB-ROCHE-720084

PATIENT
  Age: 73 Year
  Sex: Female
  Weight: 61 kg

DRUGS (7)
  1. CAPECITABINE [Suspect]
     Dosage: DRUG WITHDRAWN.
     Route: 048
     Dates: start: 20100305
  2. CISPLATIN [Suspect]
     Dosage: DRUG WITHDRAWN.
     Route: 042
     Dates: start: 20100305
  3. EPIRUBICIN [Suspect]
     Dosage: DRUG WITHDRAWN.
     Route: 040
     Dates: start: 20100305
  4. BENDROFLUMETHIAZIDE [Concomitant]
     Route: 048
     Dates: end: 20100225
  5. LISINOPRIL [Concomitant]
     Route: 048
     Dates: end: 20100225
  6. METOCLOPRAMIDE [Concomitant]
     Route: 048
     Dates: start: 20100315, end: 20100410
  7. SIMVASTATIN [Concomitant]
     Route: 048

REACTIONS (2)
  - COLITIS ISCHAEMIC [None]
  - LARGE INTESTINE PERFORATION [None]
